FAERS Safety Report 8507151-0 (Version None)
Quarter: 2012Q3

REPORT INFORMATION
  Report Type: 
  Country: None (occurrence: None)
  Receive Date: 20120703
  Receipt Date: 20120702
  Transmission Date: 20120928
  Serious: Yes (Hospitalization, Disabling, Other)
  Sender: FDA-Public Use
  Company Number: 2010SP010131

PATIENT
  Age: 25 Year
  Sex: Female
  Weight: 81.6475 kg

DRUGS (1)
  1. NUVARING [Suspect]
     Indication: CONTRACEPTION
     Dosage: QM
     Dates: start: 20080208, end: 20080221

REACTIONS (18)
  - CHEST PAIN [None]
  - GASTROINTESTINAL DISORDER [None]
  - MYALGIA [None]
  - PHARYNGITIS [None]
  - DEPRESSION [None]
  - DRUG EFFECT DECREASED [None]
  - BRONCHITIS BACTERIAL [None]
  - PULMONARY EMBOLISM [None]
  - HAEMORRHOIDS [None]
  - DECREASED APPETITE [None]
  - CHOLECYSTECTOMY [None]
  - WEIGHT DECREASED [None]
  - MUSCULOSKELETAL CHEST PAIN [None]
  - ABDOMINAL PAIN UPPER [None]
  - DEEP VEIN THROMBOSIS [None]
  - HAEMOPTYSIS [None]
  - PAIN [None]
  - VIRAL INFECTION [None]
